FAERS Safety Report 7318741-5 (Version None)
Quarter: 2011Q1

REPORT INFORMATION
  Report Type: 
  Country: None (occurrence: None)
  Receive Date: 20110228
  Receipt Date: 20100224
  Transmission Date: 20110831
  Serious: No
  Sender: FDA-Public Use
  Company Number: A0846250A

PATIENT
  Age: 52 Year
  Sex: Female

DRUGS (4)
  1. METOPROLOL [Concomitant]
  2. IMITREX [Suspect]
     Indication: MIGRAINE
     Dosage: 6MG AS REQUIRED
     Route: 058
  3. NEXIUM [Concomitant]
  4. SIMVASTATIN [Concomitant]

REACTIONS (3)
  - EXPIRED DRUG ADMINISTERED [None]
  - VOMITING [None]
  - DRUG INEFFECTIVE [None]
